FAERS Safety Report 13294341 (Version 4)
Quarter: 2017Q3

REPORT INFORMATION
  Report Type: Spontaneous
  Country: JP (occurrence: JP)
  Receive Date: 20170303
  Receipt Date: 20170808
  Transmission Date: 20171127
  Serious: Yes (Life-Threatening, Hospitalization, Other)
  Sender: FDA-Public Use
  Company Number: JP-ELI_LILLY_AND_COMPANY-JP201703001319

PATIENT
  Age: 57 Year
  Sex: Male
  Weight: 62 kg

DRUGS (31)
  1. ACUATIM [Concomitant]
     Active Substance: NADIFLOXACIN
     Indication: DERMATITIS ACNEIFORM
     Route: 061
     Dates: start: 20161119
  2. OXYCONTIN [Concomitant]
     Active Substance: OXYCODONE HYDROCHLORIDE
     Dosage: 5 MG, BID
     Route: 048
     Dates: start: 20161212, end: 20161218
  3. PREDONINE [Concomitant]
     Active Substance: PREDNISOLONE
     Indication: DERMATITIS
     Dosage: 10 MG, QD
     Route: 048
     Dates: start: 20161121, end: 20161210
  4. ATARAX-P                           /00058402/ [Concomitant]
     Active Substance: HYDROXYZINE HYDROCHLORIDE
     Indication: PROPHYLAXIS
     Dosage: 100 MG, DAILY
     Route: 051
     Dates: start: 20161020, end: 20161202
  5. NOVAMIN                            /00013301/ [Concomitant]
     Active Substance: PROCHLORPERAZINE
     Indication: PROPHYLAXIS
     Dosage: 5 MG, TID
     Route: 048
     Dates: start: 20161110, end: 20161122
  6. HIRUDOID [Concomitant]
     Active Substance: GLYCOSAMINOGLYCANS
     Dosage: UNK UNK, BID
     Route: 061
     Dates: start: 20161028
  7. HACHIAZULE                         /00317302/ [Concomitant]
     Indication: STOMATITIS
     Route: 065
     Dates: start: 20161211
  8. FEXOFENADINE [Concomitant]
     Active Substance: FEXOFENADINE\FEXOFENADINE HYDROCHLORIDE
     Indication: DERMATITIS
     Dosage: 60 MG, BID
     Route: 048
     Dates: start: 20161121
  9. GLYCERIN                           /00200601/ [Concomitant]
     Active Substance: GLYCERIN
     Indication: STOMATITIS
     Route: 065
     Dates: start: 201611
  10. LIDOMEX [Concomitant]
     Active Substance: PREDNISOLONE VALERATE ACETATE
     Indication: DERMATITIS ACNEIFORM
     Dosage: UNK UNK, UNKNOWN
     Route: 061
     Dates: start: 20161104
  11. ERBITUX [Suspect]
     Active Substance: CETUXIMAB
     Indication: OROPHARYNGEAL CANCER
     Dosage: 400 MG/M2, WEEKLY (1/W)
     Route: 042
     Dates: start: 20161020, end: 20161020
  12. MINOMYCIN [Concomitant]
     Active Substance: MINOCYCLINE HYDROCHLORIDE
     Dosage: 200 MG, BID
     Route: 048
     Dates: start: 20161121, end: 20161210
  13. OXYCONTIN [Concomitant]
     Active Substance: OXYCODONE HYDROCHLORIDE
     Indication: NECK PAIN
     Dosage: 10 MG, BID
     Route: 048
     Dates: start: 20161110, end: 20161120
  14. OXYCONTIN [Concomitant]
     Active Substance: OXYCODONE HYDROCHLORIDE
     Dosage: 5 MG, BID
     Route: 048
     Dates: start: 20161222
  15. OXINORM                            /00045603/ [Concomitant]
     Active Substance: OXYCODONE HYDROCHLORIDE
     Indication: NECK PAIN
     Dosage: 2.5 MG, UNKNOWN
     Route: 048
     Dates: start: 20161110
  16. PROPETO [Concomitant]
     Indication: DRY SKIN
     Dosage: UNK UNK, UNKNOWN
     Route: 061
     Dates: start: 20161111
  17. NOVAMIN                            /00013301/ [Concomitant]
     Active Substance: PROCHLORPERAZINE
     Dosage: 5 MG, TID
     Route: 048
     Dates: start: 20161226
  18. HIRUDOID [Concomitant]
     Active Substance: GLYCOSAMINOGLYCANS
     Dosage: UNK UNK, UNKNOWN
     Route: 061
     Dates: start: 20161118
  19. XYLOCAINE [Concomitant]
     Active Substance: LIDOCAINE HYDROCHLORIDE
     Route: 065
     Dates: start: 201611
  20. AZUNOL                             /00317302/ [Concomitant]
     Indication: STOMATITIS
     Dosage: UNK UNK, UNKNOWN
     Route: 061
     Dates: start: 20161104
  21. LEUCON                             /00300201/ [Concomitant]
     Active Substance: ADENINE
     Indication: WHITE BLOOD CELL COUNT DECREASED
     Dosage: 20 MG, TID
     Route: 048
     Dates: start: 20161226
  22. OXYCONTIN [Concomitant]
     Active Substance: OXYCODONE HYDROCHLORIDE
     Dosage: 5 MG, TID
     Route: 048
     Dates: start: 20161219, end: 20161221
  23. HIRUDOID [Concomitant]
     Active Substance: GLYCOSAMINOGLYCANS
     Indication: PROPHYLAXIS
     Route: 061
     Dates: start: 20161020
  24. MYSER                              /00115501/ [Concomitant]
     Active Substance: CYCLOSERINE
     Indication: PROPHYLAXIS
     Route: 061
     Dates: start: 20161028
  25. LOCOID [Concomitant]
     Active Substance: HYDROCORTISONE BUTYRATE
     Indication: DERMATITIS ACNEIFORM
     Dosage: UNK UNK, UNKNOWN
     Route: 061
     Dates: start: 20161114
  26. DERMOVATE [Concomitant]
     Active Substance: CLOBETASOL
     Indication: DERMATITIS ACNEIFORM
     Dosage: UNK UNK, UNKNOWN
     Route: 061
     Dates: start: 20161205
  27. ERBITUX [Suspect]
     Active Substance: CETUXIMAB
     Dosage: 250 MG/M2, UNKNOWN
     Route: 042
     Dates: start: 20161028, end: 20161202
  28. MINOMYCIN [Concomitant]
     Active Substance: MINOCYCLINE HYDROCHLORIDE
     Indication: PROPHYLAXIS
     Dosage: 100 MG, QD
     Route: 048
     Dates: start: 20161019, end: 20161120
  29. OXYCONTIN [Concomitant]
     Active Substance: OXYCODONE HYDROCHLORIDE
     Dosage: 5 MG, BID
     Route: 048
     Dates: start: 20161121, end: 20161122
  30. PREDNISOLONE. [Concomitant]
     Active Substance: PREDNISOLONE
     Indication: PROPHYLAXIS
     Route: 061
     Dates: start: 20161020
  31. XYLOCAINE [Concomitant]
     Active Substance: LIDOCAINE HYDROCHLORIDE
     Indication: STOMATITIS
     Dosage: UNK UNK, UNKNOWN
     Route: 061
     Dates: start: 20161031

REACTIONS (18)
  - Enterocolitis haemorrhagic [Unknown]
  - Oliguria [Unknown]
  - Rash generalised [Unknown]
  - Shock haemorrhagic [Unknown]
  - Bone marrow failure [Recovering/Resolving]
  - Skin necrosis [Not Recovered/Not Resolved]
  - Melaena [Unknown]
  - Hypoxia [Unknown]
  - Abdominal distension [Unknown]
  - Gastrointestinal polyp haemorrhage [Unknown]
  - Toxic shock syndrome [Recovered/Resolved with Sequelae]
  - Bacteraemia [Not Recovered/Not Resolved]
  - Swelling [Recovering/Resolving]
  - Delirium [Unknown]
  - Generalised oedema [Unknown]
  - Otorrhoea [Unknown]
  - Capillary leak syndrome [Unknown]
  - Fluid retention [Unknown]

NARRATIVE: CASE EVENT DATE: 2016
